FAERS Safety Report 26038130 (Version 1)
Quarter: 2025Q4

REPORT INFORMATION
  Report Type: Spontaneous
  Country: US (occurrence: US)
  Receive Date: 20251113
  Receipt Date: 20251113
  Transmission Date: 20260118
  Serious: No
  Sender: ROCHE
  Company Number: US-ROCHE-10000428990

PATIENT
  Sex: Female

DRUGS (2)
  1. XOLAIR [Suspect]
     Active Substance: OMALIZUMAB
     Indication: Asthma
     Dosage: FORM STRENGTH: 150MG/ML
     Route: 058
     Dates: start: 202011
  2. OTEZLA [Concomitant]
     Active Substance: APREMILAST
     Dosage: 1 TABLET A DAY INSTEAD OF 2 TABLETS

REACTIONS (3)
  - Abdominal pain upper [Unknown]
  - Muscle spasms [Unknown]
  - Frequent bowel movements [Unknown]
